FAERS Safety Report 25593665 (Version 2)
Quarter: 2025Q3

REPORT INFORMATION
  Report Type: Report from Study
  Country: US (occurrence: US)
  Receive Date: 20250722
  Receipt Date: 20250729
  Transmission Date: 20251021
  Serious: Yes (Other)
  Sender: ABBVIE
  Company Number: US-ABBVIE-6379123

PATIENT
  Age: 43 Year
  Sex: Female

DRUGS (2)
  1. CREON [Suspect]
     Active Substance: PANCRELIPASE AMYLASE\PANCRELIPASE LIPASE\PANCRELIPASE PROTEASE
     Indication: Product used for unknown indication
     Route: 048
     Dates: start: 20160701, end: 2020
  2. CREON [Suspect]
     Active Substance: PANCRELIPASE AMYLASE\PANCRELIPASE LIPASE\PANCRELIPASE PROTEASE
     Indication: Product used for unknown indication
     Route: 048

REACTIONS (6)
  - Precancerous condition [Unknown]
  - Pancreatic failure [Recovered/Resolved]
  - Pancreatic failure [Not Recovered/Not Resolved]
  - Coeliac disease [Unknown]
  - Diarrhoea [Unknown]
  - Steatorrhoea [Unknown]

NARRATIVE: CASE EVENT DATE: 20160101
